FAERS Safety Report 6313429-1 (Version None)
Quarter: 2009Q3

REPORT INFORMATION
  Report Type: 
  Country: None (occurrence: None)
  Receive Date: 20090814
  Receipt Date: 20090814
  Transmission Date: 20100115
  Serious: No
  Sender: FDA-Public Use
  Company Number: None

PATIENT
  Age: 84 Year
  Sex: Female
  Weight: 52.1637 kg

DRUGS (1)
  1. AMBIEN CR [Suspect]
     Indication: SLEEP DISORDER THERAPY
     Dosage: 1 PILL AT BEDTIME PO
     Route: 048
     Dates: start: 20090812, end: 20090813

REACTIONS (2)
  - AMNESIA [None]
  - SOMNAMBULISM [None]
